FAERS Safety Report 5150844-6 (Version None)
Quarter: 2006Q4

REPORT INFORMATION
  Report Type: 
  Country: None (occurrence: None)
  Receive Date: 20061114
  Receipt Date: 20060302
  Transmission Date: 20070319
  Serious: Yes (Life-Threatening, Hospitalization, Disabling, Other)
  Sender: FDA-Public Use
  Company Number: FR-ELI_LILLY_AND_COMPANY-FR200603000677

PATIENT
  Age: 58 Year
  Sex: Female

DRUGS (3)
  1. OPTRUMA [Suspect]
     Indication: OSTEOPOROSIS
     Dosage: 60 MG, DAILY (1/D)
     Route: 048
     Dates: start: 20051001, end: 20060105
  2. ART 50 [Concomitant]
     Route: 065
     Dates: start: 20050101
  3. ERCEFURYL [Concomitant]
     Route: 065
     Dates: start: 19920101

REACTIONS (2)
  - BREAST CANCER [None]
  - PULMONARY EMBOLISM [None]
